FAERS Safety Report 17156694 (Version 1)
Quarter: 2019Q4

REPORT INFORMATION
  Report Type: Spontaneous
  Country: US (occurrence: US)
  Receive Date: 20191216
  Receipt Date: 20191216
  Transmission Date: 20200122
  Serious: Yes (Hospitalization)
  Sender: FDA-Public Use
  Company Number: US-TEVA-2019-US-1153143

PATIENT
  Age: 14 Year
  Sex: Male

DRUGS (1)
  1. CLINDAMYCIN. [Suspect]
     Active Substance: CLINDAMYCIN
     Indication: ANTIBIOTIC THERAPY
     Dosage: 1800 MILLIGRAM DAILY; 3 TIMES DAILY
     Route: 048

REACTIONS (3)
  - Bone deformity [Recovered/Resolved]
  - Haemophilus infection [Recovered/Resolved]
  - Osteomyelitis chronic [Recovered/Resolved]
